FAERS Safety Report 7817004-9 (Version None)
Quarter: 2011Q4

REPORT INFORMATION
  Report Type: 
  Country: None (occurrence: None)
  Receive Date: 20111017
  Receipt Date: 20111014
  Transmission Date: 20120403
  Serious: Yes (Hospitalization)
  Sender: FDA-Public Use
  Company Number: AU-AMGEN-AUSCT2011051551

PATIENT
  Age: 63 Year
  Sex: Female

DRUGS (2)
  1. BLINDED PLACEBO [Suspect]
     Indication: BREAST CANCER
  2. BLINDED DENOSUMAB [Suspect]
     Indication: BREAST CANCER

REACTIONS (1)
  - CHEST PAIN [None]
